FAERS Safety Report 15575347 (Version 1)
Quarter: 2018Q4

REPORT INFORMATION
  Report Type: Spontaneous
  Country: JP (occurrence: JP)
  Receive Date: 20181101
  Receipt Date: 20181101
  Transmission Date: 20190205
  Serious: Yes (Other)
  Sender: FDA-Public Use
  Company Number: JP-BAYER-2018-198799

PATIENT
  Age: 75 Year
  Sex: Female

DRUGS (2)
  1. ARGATROBAN. [Concomitant]
     Active Substance: ARGATROBAN
  2. BAYASPIRIN 100 MG [Suspect]
     Active Substance: ASPIRIN

REACTIONS (3)
  - Ruptured cerebral aneurysm [Not Recovered/Not Resolved]
  - Subarachnoid haemorrhage [Not Recovered/Not Resolved]
  - Labelled drug-drug interaction medication error [None]
